FAERS Safety Report 5410003-6 (Version None)
Quarter: 2007Q3

REPORT INFORMATION
  Report Type: 
  Country: None (occurrence: None)
  Receive Date: 20070713
  Receipt Date: 20070425
  Transmission Date: 20080115
  Serious: No
  Sender: FDA-Public Use
  Company Number: 2007SP001505

PATIENT
  Age: 39 Year
  Sex: Female

DRUGS (7)
  1. FCB078 [Suspect]
     Indication: INSOMNIA
     Dosage: 3 MG;ORAL
     Route: 048
     Dates: start: 20070424
  2. SOMA [Concomitant]
  3. PERCOCET [Concomitant]
  4. CYMBALTA [Concomitant]
  5. ATORVASTATIN CALCIUM [Concomitant]
  6. GABITRIL [Concomitant]
  7. LEVOTHYROXINE SODIUM [Concomitant]

REACTIONS (1)
  - DYSGEUSIA [None]
